FAERS Safety Report 9438793 (Version 5)
Quarter: 2013Q4

REPORT INFORMATION
  Report Type: Spontaneous
  Country: JP (occurrence: JP)
  Receive Date: 20130802
  Receipt Date: 20131213
  Transmission Date: 20140711
  Serious: Yes (Hospitalization, Disabling, Other)
  Sender: FDA-Public Use
  Company Number: JP-BRISTOL-MYERS SQUIBB COMPANY-19153071

PATIENT
  Age: 55 Year
  Sex: Male
  Weight: 66.4 kg

DRUGS (2)
  1. BARACLUDE TABS 0.5 MG [Suspect]
     Indication: HEPATITIS B
     Route: 048
     Dates: start: 201211, end: 20130729
  2. CYCLOSPORINE [Suspect]
     Indication: PSORIASIS
     Dosage: 150MG/DAYBID-MAR09,09JUL13-29JUL13?50MG/DAYBID-JUN13?100MG/DAYBID-29JUL13-ONGOING
     Route: 048
     Dates: start: 200903

REACTIONS (2)
  - Pemphigoid [Not Recovered/Not Resolved]
  - Erythema [Not Recovered/Not Resolved]
